FAERS Safety Report 5789223-7 (Version None)
Quarter: 2008Q2

REPORT INFORMATION
  Report Type: 
  Country: None (occurrence: None)
  Receive Date: 20080625
  Receipt Date: 20080625
  Transmission Date: 20081010
  Serious: No
  Sender: FDA-Public Use
  Company Number: None

PATIENT
  Age: 69 Year
  Sex: Male
  Weight: 81.6475 kg

DRUGS (1)
  1. DOUBLE STRENGTH GLUCOSAMINE CHON 500/400 MG CAREONE [Suspect]
     Indication: ARTHRITIS
     Dosage: 3 CAPLETS DAILY PO
     Route: 048
     Dates: start: 20080615, end: 20080620

REACTIONS (2)
  - HEADACHE [None]
  - PHARMACEUTICAL PRODUCT COMPLAINT [None]
